FAERS Safety Report 8588135-3 (Version None)
Quarter: 2012Q3

REPORT INFORMATION
  Report Type: 
  Country: None (occurrence: None)
  Receive Date: 20120813
  Receipt Date: 20120726
  Transmission Date: 20120928
  Serious: No
  Sender: FDA-Public Use
  Company Number: US-009507513-1207USA011766

PATIENT

DRUGS (3)
  1. TRUVADA [Concomitant]
     Dosage: UNK
  2. VITAMINS (UNSPECIFIED) [Concomitant]
  3. ISENTRESS [Suspect]
     Dosage: 400 MG, BID
     Route: 048
     Dates: start: 20080101

REACTIONS (7)
  - NASAL CONGESTION [None]
  - INFLUENZA LIKE ILLNESS [None]
  - DRUG DOSE OMISSION [None]
  - OROPHARYNGEAL PAIN [None]
  - PYREXIA [None]
  - PAIN [None]
  - HEADACHE [None]
